FAERS Safety Report 20592077 (Version 6)
Quarter: 2022Q4

REPORT INFORMATION
  Report Type: Report from Study
  Country: TR (occurrence: None)
  Receive Date: 20220314
  Receipt Date: 20221202
  Transmission Date: 20230112
  Serious: Yes (Life-Threatening, Hospitalization)
  Sender: FDA-Public Use
  Company Number: TR-ROCHE-3039131

PATIENT
  Age: 3 Year
  Sex: Female
  Weight: 16.1 kg

DRUGS (8)
  1. RISDIPLAM [Suspect]
     Active Substance: RISDIPLAM
     Indication: Spinal muscular atrophy
     Dosage: ON 27/JUL/2021, SHE RECEIVED THE LAST DOSE OF RISDIPLAM PRIOR TO THE EVENT OF PULMONARY INFECTION.
     Route: 048
     Dates: start: 20181109
  2. DORMICUM [Concomitant]
     Dates: start: 20211116, end: 20211208
  3. CEFTAZIDIME [Concomitant]
     Active Substance: CEFTAZIDIME
     Dates: start: 20211128, end: 20211208
  4. VANCOMYCIN [Concomitant]
     Active Substance: VANCOMYCIN
     Dates: start: 20211116, end: 20211130
  5. FLUCONAZOLE [Concomitant]
     Active Substance: FLUCONAZOLE
     Dates: start: 20211127, end: 20211208
  6. MEROPENEM [Concomitant]
     Active Substance: MEROPENEM
     Dates: start: 20211204, end: 20211208
  7. FENTANYL [Concomitant]
     Active Substance: FENTANYL
     Dates: start: 20211116, end: 20211208
  8. ROCURONIUM BROMIDE [Concomitant]
     Active Substance: ROCURONIUM BROMIDE
     Dates: start: 20211116, end: 20211208

REACTIONS (4)
  - Asphyxia [Recovered/Resolved with Sequelae]
  - Pneumonia [Recovered/Resolved]
  - Pneumonia [Recovered/Resolved]
  - Cough [Recovered/Resolved]

NARRATIVE: CASE EVENT DATE: 20210727
